FAERS Safety Report 6557344-7 (Version None)
Quarter: 2010Q1

REPORT INFORMATION
  Report Type: 
  Country: None (occurrence: None)
  Receive Date: 20100128
  Receipt Date: 20100128
  Transmission Date: 20100710
  Serious: No
  Sender: FDA-Public Use
  Company Number: None

PATIENT
  Sex: Female
  Weight: 77.3 kg

DRUGS (1)
  1. ORIGINAL ROLAIDS PEPPERMENT MCNEIL [Suspect]
     Indication: DYSPEPSIA
     Dosage: 1 TABLET 3 OR 4 PER DAY MOUTH
     Route: 048
     Dates: start: 20091224, end: 20100116

REACTIONS (4)
  - DIARRHOEA [None]
  - MUSCLE SPASMS [None]
  - NAUSEA [None]
  - PRODUCT QUALITY ISSUE [None]
